FAERS Safety Report 24300232 (Version 1)
Quarter: 2024Q3

REPORT INFORMATION
  Report Type: Spontaneous
  Country: PT (occurrence: PT)
  Receive Date: 20240909
  Receipt Date: 20240909
  Transmission Date: 20241017
  Serious: Yes (Death, Other)
  Sender: JOHNSON AND JOHNSON
  Company Number: PT-BAYER-2024A128052

PATIENT
  Age: 67 Year
  Sex: Male

DRUGS (2)
  1. RIVAROXABAN [Suspect]
     Active Substance: RIVAROXABAN
     Indication: Embolism venous
     Dosage: 20 MG, QD
     Route: 048
  2. ENOXAPARIN [Concomitant]
     Active Substance: ENOXAPARIN
     Indication: Embolism venous
     Dosage: 1 MG/KG, BID

REACTIONS (6)
  - Adenocarcinoma gastric [Fatal]
  - Thrombosis [Not Recovered/Not Resolved]
  - Osteosarcoma [Unknown]
  - Polyserositis [Not Recovered/Not Resolved]
  - Chylothorax [Unknown]
  - Metabolic disorder [Unknown]
